FAERS Safety Report 13931413 (Version 3)
Quarter: 2017Q4

REPORT INFORMATION
  Report Type: Report from Study
  Country: None (occurrence: CA)
  Receive Date: 20170903
  Receipt Date: 20171025
  Transmission Date: 20180320
  Serious: Yes (Other)
  Sender: FDA-Public Use
  Company Number: CA-ABBVIE-17K-028-2086154-00

PATIENT
  Sex: Female

DRUGS (2)
  1. HUMIRA [Suspect]
     Active Substance: ADALIMUMAB
     Route: 058
     Dates: start: 2017
  2. HUMIRA [Suspect]
     Active Substance: ADALIMUMAB
     Indication: PSORIATIC ARTHROPATHY
     Route: 058
     Dates: start: 20090717, end: 201707

REACTIONS (6)
  - Infection [Recovering/Resolving]
  - Hysterectomy [Unknown]
  - Cystitis [Recovering/Resolving]
  - Urinary tract infection [Unknown]
  - Urinary tract infection fungal [Recovering/Resolving]
  - Pelvic prolapse [Recovering/Resolving]

NARRATIVE: CASE EVENT DATE: 2017
